FAERS Safety Report 23189782 (Version 1)
Quarter: 2023Q4

REPORT INFORMATION
  Report Type: Spontaneous
  Country: US (occurrence: US)
  Receive Date: 20231116
  Receipt Date: 20231116
  Transmission Date: 20240109
  Serious: Yes (Other)
  Sender: FDA-Public Use
  Company Number: US-ENDO-CASE-0042304

PATIENT
  Sex: Male

DRUGS (8)
  1. PERCOCET [Suspect]
     Active Substance: ACETAMINOPHEN\OXYCODONE HYDROCHLORIDE
  2. DIAZEPAM [Suspect]
     Active Substance: DIAZEPAM
  3. METHOCARBAMOL [Suspect]
     Active Substance: METHOCARBAMOL
  4. FENTANYL CITRATE [Suspect]
     Active Substance: FENTANYL CITRATE
  5. DEXAMETHASONE [Suspect]
     Active Substance: DEXAMETHASONE
  6. ABSTRAL [Suspect]
     Active Substance: FENTANYL CITRATE
  7. HYDROMORPHONE [Suspect]
     Active Substance: HYDROMORPHONE
  8. OXYCODONE [Suspect]
     Active Substance: OXYCODONE

REACTIONS (8)
  - Overdose [Unknown]
  - Fractured sacrum [Unknown]
  - Chills [Unknown]
  - Tremor [Unknown]
  - Dependence [Unknown]
  - Delusional disorder, unspecified type [Unknown]
  - Peripheral coldness [Unknown]
  - Withdrawal syndrome [Unknown]
